FAERS Safety Report 9326223 (Version 1)
Quarter: 2013Q2

REPORT INFORMATION
  Report Type: Spontaneous
  Country: US (occurrence: US)
  Receive Date: 20130604
  Receipt Date: 20130604
  Transmission Date: 20140414
  Serious: Yes (Other)
  Sender: FDA-Public Use
  Company Number: US-PFIZER INC-2013165124

PATIENT
  Age: 44 Year
  Sex: Female
  Weight: 131.52 kg

DRUGS (10)
  1. PREMARIN [Suspect]
     Indication: HORMONE REPLACEMENT THERAPY
     Dosage: 1.25 MG, 1X/DAY
     Route: 048
     Dates: end: 201212
  2. MICARDIS HCT [Concomitant]
     Dosage: 80/12.5 MG, 1X/DAY
  3. METOPROLOL [Concomitant]
     Dosage: 50 MG, 2X/DAY
  4. DILTIAZEM CD [Concomitant]
     Dosage: 180 MG, 2X/DAY
  5. PRADAXA [Concomitant]
     Dosage: 150 MG, 2X/DAY
  6. LOVASTATIN [Concomitant]
     Dosage: 10 MG, 1X/DAY
  7. CLOPIDOGREL [Concomitant]
     Dosage: 75 MG, 1X/DAY
  8. PEPCID [Concomitant]
     Dosage: 20 MG, 1X/DAY
  9. LANTUS SOLOSTAR [Concomitant]
     Dosage: 50 IU, 2X/DAY
  10. HUMALOG [Concomitant]
     Dosage: 20 IU, 3X/DAY

REACTIONS (2)
  - Type 2 diabetes mellitus [Unknown]
  - Hypertension [Unknown]
